FAERS Safety Report 24074821 (Version 1)
Quarter: 2024Q3

REPORT INFORMATION
  Report Type: Spontaneous
  Country: IT (occurrence: IT)
  Receive Date: 20240710
  Receipt Date: 20240710
  Transmission Date: 20241017
  Serious: No
  Sender: PIERRE FABRE MEDICAMENT
  Company Number: IT-SANDOZ-SDZ2023IT067471

PATIENT
  Age: 15 Year
  Sex: Male
  Weight: 50 kg

DRUGS (3)
  1. PROPRANOLOL [Suspect]
     Active Substance: PROPRANOLOL HYDROCHLORIDE
     Indication: Myopathy
     Dosage: 120 MG, QD (1/DAY) (2.4 MG/KG; RECOMMENDED DOSAGE, 1-3 MG/KG/DAY)1 DIVIDED 3 TIMES A DAY FOR 1 MONTH
     Route: 065
  2. NADOLOL [Suspect]
     Active Substance: NADOLOL
     Indication: Myopathy
     Dosage: 40 MG, QD (1/DAY)
     Route: 065
  3. SOTALOL [Suspect]
     Active Substance: SOTALOL
     Indication: Myopathy
     Dosage: 120 MG, QD (1/DAY) (DIVIDED 2 TIMES A DAY AT THAT TIME (2.4 MG/KG/DAY; RECOMMENDED DOSAGE, 2-8 MG/KG
     Route: 065

REACTIONS (5)
  - Asthenia [Unknown]
  - Product administered to patient of inappropriate age [Unknown]
  - Product use in unapproved indication [Unknown]
  - Inappropriate schedule of product administration [Unknown]
  - Off label use [Unknown]
